FAERS Safety Report 12911643 (Version 1)
Quarter: 2016Q4

REPORT INFORMATION
  Report Type: Spontaneous
  Country: ZA (occurrence: ZA)
  Receive Date: 20161104
  Receipt Date: 20161104
  Transmission Date: 20170207
  Serious: Yes (Death)
  Sender: FDA-Public Use
  Company Number: ZA-MUNDIPHARMA DS AND PHARMACOVIGILANCE-GBR-2016-0041373

PATIENT

DRUGS (1)
  1. SOVENOR [Suspect]
     Active Substance: BUPRENORPHINE
     Indication: PRODUCT USED FOR UNKNOWN INDICATION
     Dosage: UNK UNK, SINGLE
     Route: 062
     Dates: start: 201604

REACTIONS (1)
  - Death [Fatal]
